FAERS Safety Report 8119733-9 (Version None)
Quarter: 2012Q1

REPORT INFORMATION
  Report Type: 
  Country: None (occurrence: None)
  Receive Date: 20120207
  Receipt Date: 20120206
  Transmission Date: 20120608
  Serious: Yes (Other)
  Sender: FDA-Public Use
  Company Number: PHHY2011DE83245

PATIENT
  Age: 89 Year
  Sex: Male
  Weight: 70 kg

DRUGS (7)
  1. EXJADE [Suspect]
     Dosage: 500 MG, DAILY
     Route: 048
     Dates: start: 20110720, end: 20110831
  2. EXJADE [Suspect]
     Dosage: UNK UKN, UNK
  3. TAMSULOSIN HCL [Concomitant]
  4. LEVOTHYROXINE SODIUM [Concomitant]
     Indication: THYROID HAEMORRHAGE
     Dosage: 100?G/D
     Route: 048
  5. LISINOPRIL [Concomitant]
     Indication: HYPERTENSION
     Dosage: 5MG/D
     Route: 048
  6. EXJADE [Suspect]
     Indication: MYELODYSPLASTIC SYNDROME
     Dosage: 250 MG, DAILY
     Route: 048
     Dates: start: 20101117, end: 20110719
  7. ALENDRONATE SODIUM [Concomitant]
     Indication: OSTEOPOROSIS
     Dosage: 10MG/D
     Route: 048

REACTIONS (3)
  - BLOOD CREATININE INCREASED [None]
  - BLOOD URIC ACID INCREASED [None]
  - CREATININE RENAL CLEARANCE DECREASED [None]
